FAERS Safety Report 8507942-6 (Version None)
Quarter: 2012Q3

REPORT INFORMATION
  Report Type: 
  Country: None (occurrence: None)
  Receive Date: 20120709
  Receipt Date: 20120709
  Transmission Date: 20120928
  Serious: Yes (Other)
  Sender: FDA-Public Use
  Company Number: None

PATIENT
  Age: 68 Year
  Sex: Female
  Weight: 47.6277 kg

DRUGS (2)
  1. VAGIFEM [Suspect]
     Indication: ATROPHIC VULVOVAGINITIS
     Dosage: 10 MCG TWICE A WEEK RECTAL ; 10 MCG ONCE A WEEK RECTAL 9 MONTHS TWICE A WEEK
     Route: 054
     Dates: start: 20080101, end: 20111101
  2. VAGIFEM [Suspect]
     Indication: ATROPHIC VULVOVAGINITIS
     Dosage: 10 MCG TWICE A WEEK RECTAL ; 10 MCG ONCE A WEEK RECTAL 9 MONTHS TWICE A WEEK
     Route: 054
     Dates: start: 20111101, end: 20120502

REACTIONS (1)
  - UTERINE LEIOMYOMA [None]
